FAERS Safety Report 24982846 (Version 1)
Quarter: 2025Q1

REPORT INFORMATION
  Report Type: Spontaneous
  Country: KR (occurrence: KR)
  Receive Date: 20250218
  Receipt Date: 20250218
  Transmission Date: 20250409
  Serious: Yes (Other)
  Sender: NOVARTIS
  Company Number: KR-002147023-NVSC2025KR027267

PATIENT

DRUGS (1)
  1. BEOVU [Suspect]
     Active Substance: BROLUCIZUMAB-DBLL
     Indication: Detachment of retinal pigment epithelium
     Route: 031

REACTIONS (5)
  - Eye inflammation [Unknown]
  - Keratic precipitates [Unknown]
  - Anterior chamber cell [Unknown]
  - Visual acuity tests abnormal [Unknown]
  - Intraocular pressure test abnormal [Unknown]
